FAERS Safety Report 8187393-7 (Version None)
Quarter: 2012Q1

REPORT INFORMATION
  Report Type: 
  Country: None (occurrence: None)
  Receive Date: 20120306
  Receipt Date: 20120227
  Transmission Date: 20120608
  Serious: Yes (Hospitalization, Other)
  Sender: FDA-Public Use
  Company Number: US-BAYER-200939505NA

PATIENT
  Age: 23 Year
  Sex: Female
  Weight: 73 kg

DRUGS (8)
  1. ZYRTEC [Concomitant]
  2. ASCORBIC ACID [Concomitant]
  3. IBUPROFEN (ADVIL) [Concomitant]
  4. EFFEXOR XR [Concomitant]
     Indication: ANXIETY
  5. TYLENOL COLD [PARACETAMOL] [Concomitant]
  6. YASMIN [Suspect]
     Indication: PRODUCT USED FOR UNKNOWN INDICATION
     Dates: start: 20050101, end: 20060901
  7. COUMADIN [Concomitant]
  8. LOVENOX [Concomitant]

REACTIONS (7)
  - DYSPNOEA [None]
  - PLEURISY [None]
  - ANXIETY [None]
  - PAIN [None]
  - ANXIETY DISORDER DUE TO A GENERAL MEDICAL CONDITION [None]
  - PULMONARY EMBOLISM [None]
  - CHEST DISCOMFORT [None]
